FAERS Safety Report 20322464 (Version 1)
Quarter: 2022Q1

REPORT INFORMATION
  Report Type: Spontaneous
  Country: US (occurrence: None)
  Receive Date: 20220111
  Receipt Date: 20220111
  Transmission Date: 20220423
  Serious: Yes (Hospitalization)
  Sender: FDA-Public Use
  Company Number: None

PATIENT
  Age: 57 Year
  Sex: Female

DRUGS (15)
  1. REPATHA [Suspect]
     Active Substance: EVOLOCUMAB
     Indication: Type IIa hyperlipidaemia
     Dosage: FREQUENCY : EVERY OTHER WEEK;?
     Route: 058
     Dates: start: 20181002
  2. CHANTIX PAK [Concomitant]
  3. CHANTIX TAB [Concomitant]
  4. CYCLOBENZAPR TAB [Concomitant]
  5. DEODON CAP [Concomitant]
  6. METHOCARBAM TAB [Concomitant]
  7. OXYCOD/APAP TAB [Concomitant]
  8. PROMETHAZINE HYDROCHLORIDE [Concomitant]
     Active Substance: PROMETHAZINE HYDROCHLORIDE
  9. PROPRANOLOL TAB [Concomitant]
  10. REPATHA SURE INJ [Concomitant]
  11. SUMATRIPTAN INJ [Concomitant]
  12. SUMATRIPTAN TAB [Concomitant]
  13. TOPAMAX TAB [Concomitant]
  14. VALIUM TAB [Concomitant]
  15. WELLBUTRIN TAB XL [Concomitant]

REACTIONS (2)
  - Hospitalisation [None]
  - Product dose omission issue [None]

NARRATIVE: CASE EVENT DATE: 20211202
